FAERS Safety Report 9527961 (Version 1)
Quarter: 2013Q1

REPORT INFORMATION
  Report Type: Spontaneous
  Country: US (occurrence: None)
  Receive Date: 20130314
  Receipt Date: 20130314
  Transmission Date: 20140127
  Serious: No
  Sender: FDA-Public Use
  Company Number: 1212USA000606

PATIENT
  Age: 61 Year
  Sex: Male
  Weight: 150 kg

DRUGS (4)
  1. VICTRELIS [Suspect]
     Dosage: 200 MG, UNK
  2. PEGINTRON [Suspect]
     Dosage: 82 MICROGRAM, QW 0.5 ML AND INJECT SUBQ WKLY, SUBCUTANEOUS
     Route: 058
  3. RIBAVIRIN [Suspect]
     Dosage: 300 MG UNK
  4. NEUPOGEN [Suspect]
     Dosage: 300 MICROGRAM, UNK

REACTIONS (4)
  - White blood cell count decreased [None]
  - Irritability [None]
  - Fatigue [None]
  - Mood altered [None]
